FAERS Safety Report 5053429-5 (Version None)
Quarter: 2006Q2

REPORT INFORMATION
  Report Type: 
  Country: None (occurrence: None)
  Receive Date: 20060614
  Receipt Date: 20060509
  Transmission Date: 20061013
  Serious: Yes (Other)
  Sender: FDA-Public Use
  Company Number: 447926

PATIENT
  Age: 70 Year
  Sex: Female

DRUGS (6)
  1. BONIVA [Suspect]
     Indication: OSTEOPOROSIS
     Dosage: 1 PER MONTH ORAL
     Route: 048
     Dates: start: 20060507
  2. FENARA (AMFETAMINE) [Concomitant]
  3. ATENOLOL [Concomitant]
  4. LOTREL (AMLODIPINE BESYLATE/BENAZEPRIL HYDROCHLORIDE) [Concomitant]
  5. HYDROCHLOROTHIAZIDE [Concomitant]
  6. VITAMIN (VITAMIN NOS) [Concomitant]

REACTIONS (4)
  - ANOREXIA [None]
  - ASTHENIA [None]
  - GASTROOESOPHAGEAL REFLUX DISEASE [None]
  - HEADACHE [None]
